FAERS Safety Report 17173723 (Version 1)
Quarter: 2019Q4

REPORT INFORMATION
  Report Type: Spontaneous
  Country: US (occurrence: US)
  Receive Date: 20191219
  Receipt Date: 20191219
  Transmission Date: 20200122
  Serious: No
  Sender: FDA-Public Use
  Company Number: US-SUPERNUS PHARMACEUTICALS, INC.-2019SUP00077

PATIENT
  Sex: Female

DRUGS (2)
  1. OXTELLAR XR [Suspect]
     Active Substance: OXCARBAZEPINE
     Dosage: 300 MG
  2. OXTELLAR XR [Suspect]
     Active Substance: OXCARBAZEPINE
     Dosage: 600 MG

REACTIONS (8)
  - Therapeutic product effect increased [Unknown]
  - Muscle spasms [Unknown]
  - Gastrointestinal viral infection [Unknown]
  - Off label use [Unknown]
  - Headache [Unknown]
  - Dehydration [Unknown]
  - Balance disorder [Unknown]
  - Head injury [Unknown]
